FAERS Safety Report 4867468-8 (Version None)
Quarter: 2005Q4

REPORT INFORMATION
  Report Type: 
  Country: None (occurrence: None)
  Receive Date: 20051228
  Receipt Date: 20051207
  Transmission Date: 20060501
  Serious: Yes (Disabling, Other)
  Sender: FDA-Public Use
  Company Number: CA-MERCK-0512CAN00054

PATIENT
  Sex: Male

DRUGS (1)
  1. VIOXX [Suspect]
     Route: 048
     Dates: start: 20030101, end: 20040901

REACTIONS (6)
  - ADVERSE EVENT [None]
  - ANXIETY [None]
  - CEREBROVASCULAR ACCIDENT [None]
  - HEART INJURY [None]
  - PAIN [None]
  - THROMBOSIS [None]
